FAERS Safety Report 17460829 (Version 4)
Quarter: 2021Q1

REPORT INFORMATION
  Report Type: Report from Study
  Country: CO (occurrence: CO)
  Receive Date: 20200226
  Receipt Date: 20210111
  Transmission Date: 20210419
  Serious: Yes (Hospitalization, Other)
  Sender: FDA-Public Use
  Company Number: PHHY2019CO194024

PATIENT
  Age: 27 Year
  Sex: Female
  Weight: 89 kg

DRUGS (2)
  1. ATORVASTATIN [Concomitant]
     Active Substance: ATORVASTATIN
     Indication: PRODUCT USED FOR UNKNOWN INDICATION
     Dosage: UNK
     Route: 065
  2. COSENTYX [Suspect]
     Active Substance: SECUKINUMAB
     Indication: PSORIASIS
     Dosage: 300 MG, QMO
     Route: 058
     Dates: start: 20190312, end: 20190509

REACTIONS (11)
  - Stress [Unknown]
  - Normal newborn [Unknown]
  - Psoriasis [Unknown]
  - Gestational diabetes [Unknown]
  - Vaginal haemorrhage [Unknown]
  - Maternal exposure during pregnancy [Not Recovered/Not Resolved]
  - Facial paralysis [Recovered/Resolved]
  - Urinary tract infection [Unknown]
  - Abortion threatened [Unknown]
  - Drug ineffective [Unknown]
  - Uterine haematoma [Unknown]

NARRATIVE: CASE EVENT DATE: 201903
